FAERS Safety Report 4449798-7 (Version None)
Quarter: 2004Q3

REPORT INFORMATION
  Report Type: 
  Country: None (occurrence: None)
  Receive Date: 20040802
  Receipt Date: 20040226
  Transmission Date: 20050211
  Serious: Yes (Other)
  Sender: FDA-Public Use
  Company Number: US-SHR-03-012836

PATIENT
  Age: 82 Year
  Sex: Female
  Weight: 63.5 kg

DRUGS (4)
  1. MAGNEVIST [Suspect]
     Indication: NUCLEAR MAGNETIC RESONANCE IMAGING BRAIN
     Dosage: 15 ML, 1 DOSE, INTRAVENOUS
     Route: 042
     Dates: start: 20030808, end: 20030808
  2. ASPIRIN [Concomitant]
  3. PLAVIX(CLOPIODREL SULFATE) [Concomitant]
  4. ANTIHYPERTENSIVES [Concomitant]

REACTIONS (4)
  - BURNING SENSATION [None]
  - EYELID OEDEMA [None]
  - HYPERSENSITIVITY [None]
  - URTICARIA [None]
